FAERS Safety Report 8058501-3 (Version None)
Quarter: 2012Q1

REPORT INFORMATION
  Report Type: 
  Country: None (occurrence: None)
  Receive Date: 20120120
  Receipt Date: 20120118
  Transmission Date: 20120608
  Serious: Yes (Other)
  Sender: FDA-Public Use
  Company Number: JP-PFIZER INC-2012014655

PATIENT
  Age: 79 Year
  Sex: Male

DRUGS (6)
  1. ZOLOFT [Suspect]
     Dosage: 25 MG/DAY IN THE EVENING
     Route: 048
     Dates: start: 20111213, end: 20120105
  2. ZOLOFT [Suspect]
     Dosage: 50 MG/DAY
     Route: 048
     Dates: start: 20120106, end: 20120101
  3. AVAPRO [Concomitant]
     Dosage: UNK
     Route: 048
  4. RABEPRAZOLE SODIUM [Concomitant]
     Dosage: UNK
     Route: 048
  5. DEPAS [Concomitant]
     Dosage: UNK,3 TIMES DAILY IN THE MORNING, EVENING AND BEFORE BEDTIME
     Route: 048
  6. CRESTOR [Concomitant]
     Dosage: UNK
     Route: 048

REACTIONS (2)
  - DELIRIUM [None]
  - LOSS OF CONSCIOUSNESS [None]
